FAERS Safety Report 15629091 (Version 3)
Quarter: 2019Q1

REPORT INFORMATION
  Report Type: Spontaneous
  Country: KR (occurrence: KR)
  Receive Date: 20181116
  Receipt Date: 20190201
  Transmission Date: 20190417
  Serious: Yes (Hospitalization, Other)
  Sender: FDA-Public Use
  Company Number: KR-GILEAD-2018-0372696

PATIENT
  Age: 28 Year
  Sex: Male

DRUGS (12)
  1. GENVOYA [Suspect]
     Active Substance: COBICISTAT\ELVITEGRAVIR\EMTRICITABINE\TENOFOVIR ALAFENAMIDE FUMARATE
     Indication: HIV INFECTION
     Dosage: UNK
     Route: 065
     Dates: start: 20181013, end: 20181025
  2. DUPHALAC EASY [Concomitant]
     Dosage: 15 ML
  3. TYLENOL ER [Concomitant]
     Active Substance: ACETAMINOPHEN
     Dosage: 650 MG
  4. SEPTRIN [Concomitant]
     Active Substance: SULFAMETHOXAZOLE\TRIMETHOPRIM
  5. URUSA [Concomitant]
     Active Substance: URSODIOL
     Dosage: 100 MG
  6. MACPERAN [Concomitant]
     Active Substance: METOCLOPRAMIDE HYDROCHLORIDE
     Dosage: 5 MG
  7. NYSTATIN. [Concomitant]
     Active Substance: NYSTATIN
     Dosage: 10 IU/ML
  8. LANSTON [Concomitant]
     Active Substance: LANSOPRAZOLE
     Dosage: 15 MG
  9. LEGALON [Concomitant]
     Active Substance: DIETARY SUPPLEMENT\HERBALS\MILK THISTLE
     Dosage: 140 MG
  10. DIFLUCAN [Concomitant]
     Active Substance: FLUCONAZOLE
     Dosage: 50 MG
  11. NAXEN-F [Concomitant]
     Dosage: 500 MG
  12. LAMINA-G [Concomitant]
     Dosage: 20 ML

REACTIONS (4)
  - Paralysis [Recovering/Resolving]
  - Cytomegalovirus infection [Recovered/Resolved]
  - Pneumocystis jirovecii pneumonia [Recovered/Resolved]
  - Pyrexia [Recovered/Resolved]
